FAERS Safety Report 9137592 (Version 1)
Quarter: 2013Q1

REPORT INFORMATION
  Report Type: Spontaneous
  Country: US (occurrence: US)
  Receive Date: 20130304
  Receipt Date: 20130304
  Transmission Date: 20140127
  Serious: No
  Sender: FDA-Public Use
  Company Number: US-PFIZER INC-2013072122

PATIENT
  Age: 57 Year
  Sex: Male
  Weight: 81.63 kg

DRUGS (1)
  1. PRISTIQ [Suspect]
     Indication: FATIGUE
     Dosage: 50 MG, ONCE
     Dates: start: 20130222, end: 20130223

REACTIONS (6)
  - Off label use [Unknown]
  - Nausea [Recovering/Resolving]
  - Vomiting [Recovering/Resolving]
  - Headache [Recovering/Resolving]
  - Nervousness [Recovering/Resolving]
  - Tremor [Recovering/Resolving]
